FAERS Safety Report 4627184-4 (Version None)
Quarter: 2005Q2

REPORT INFORMATION
  Report Type: 
  Country: None (occurrence: None)
  Receive Date: 20050405
  Receipt Date: 20050325
  Transmission Date: 20051028
  Serious: Yes (Other)
  Sender: FDA-Public Use
  Company Number: JP-ROCHE-400297

PATIENT
  Age: 1 Year
  Sex: Female

DRUGS (6)
  1. TAMIFLU [Suspect]
     Route: 048
     Dates: start: 20050315, end: 20050316
  2. MEIACT [Concomitant]
     Indication: DRUG USE FOR UNKNOWN INDICATION
     Route: 048
  3. ACETAMINOPHEN [Concomitant]
     Indication: DRUG USE FOR UNKNOWN INDICATION
     Route: 048
  4. MUCODYNE [Concomitant]
     Indication: DRUG USE FOR UNKNOWN INDICATION
     Route: 048
  5. ENTERONON [Concomitant]
     Route: 065
  6. ASVERIN [Concomitant]
     Indication: DRUG USE FOR UNKNOWN INDICATION
     Route: 048

REACTIONS (3)
  - CRYING [None]
  - EXCITABILITY [None]
  - LUNG DISORDER [None]
